FAERS Safety Report 15661470 (Version 1)
Quarter: 2018Q4

REPORT INFORMATION
  Report Type: Report from Study
  Country: AR (occurrence: AR)
  Receive Date: 20181127
  Receipt Date: 20181127
  Transmission Date: 20190205
  Serious: Yes (Death)
  Sender: FDA-Public Use
  Company Number: PHHY2018AR166997

PATIENT
  Sex: Male

DRUGS (1)
  1. ENTRESTO [Suspect]
     Active Substance: SACUBITRIL\VALSARTAN
     Indication: CARDIAC FAILURE
     Dosage: 3 DF (1 TAB OF 100 MG IN MORNING AND 2 TABS OF 50 MG AT NIGHT), QD
     Route: 065

REACTIONS (2)
  - Appendix disorder [Fatal]
  - Peritonitis [Fatal]
